FAERS Safety Report 5919722-6 (Version None)
Quarter: 2008Q4

REPORT INFORMATION
  Report Type: 
  Country: None (occurrence: None)
  Receive Date: 20081015
  Receipt Date: 20081008
  Transmission Date: 20090506
  Serious: No
  Sender: FDA-Public Use
  Company Number: US-B.I. PHARMACEUTICALS,INC./RIDGEFIELD-2008-BP-15559BP

PATIENT
  Age: 68 Year
  Sex: Male

DRUGS (2)
  1. FLOMAX [Suspect]
     Indication: URINARY RETENTION
     Dosage: .4MG
     Route: 048
     Dates: start: 20040101, end: 20050101
  2. UROXATRAL [Suspect]

REACTIONS (2)
  - SYNCOPE [None]
  - URINARY RETENTION [None]
